FAERS Safety Report 8732291 (Version 2)
Quarter: 2012Q4

REPORT INFORMATION
  Report Type: 
  Country: US (occurrence: US)
  Receive Date: 20120820
  Receipt Date: 20121015
  Transmission Date: 20130627
  Serious: Yes (Hospitalization, Other)
  Sender: FDA-Public Use
  Company Number: US-ROCHE-1098614

PATIENT
  Age: 64 Year
  Sex: Female

DRUGS (1)
  1. ACTIVASE [Suspect]
     Indication: CEREBROVASCULAR ACCIDENT
     Route: 042
     Dates: start: 20120713

REACTIONS (6)
  - Pyrexia [Unknown]
  - Chills [Unknown]
  - Chills [Unknown]
  - Bacteraemia [Recovering/Resolving]
  - Suspected transmission of an infectious agent via product [Unknown]
  - Product quality issue [Unknown]
